FAERS Safety Report 8027104-9 (Version None)
Quarter: 2012Q1

REPORT INFORMATION
  Report Type: 
  Country: None (occurrence: None)
  Receive Date: 20120106
  Receipt Date: 20120102
  Transmission Date: 20120608
  Serious: Yes (Hospitalization, Other)
  Sender: FDA-Public Use
  Company Number: PHFR2011GB007447

PATIENT
  Sex: Female

DRUGS (2)
  1. CLOZARIL [Suspect]
     Indication: SCHIZOPHRENIA
     Route: 048
     Dates: start: 20010626, end: 20111223
  2. CLOZARIL [Suspect]
     Route: 048
     Dates: start: 20111228

REACTIONS (3)
  - WHITE BLOOD CELL COUNT INCREASED [None]
  - PNEUMONIA [None]
  - NEUTROPHIL COUNT INCREASED [None]
